FAERS Safety Report 20392041 (Version 1)
Quarter: 2022Q1

REPORT INFORMATION
  Report Type: Spontaneous
  Country: US (occurrence: None)
  Receive Date: 20220128
  Receipt Date: 20220128
  Transmission Date: 20220424
  Serious: Yes (Death, Hospitalization)
  Sender: FDA-Public Use
  Company Number: 2022A044868

PATIENT
  Sex: Female
  Weight: 46.7 kg

DRUGS (1)
  1. SYMBICORT [Suspect]
     Active Substance: BUDESONIDE\FORMOTEROL FUMARATE DIHYDRATE
     Indication: Chronic obstructive pulmonary disease
     Dosage: UNKNOWN UNKNOWN
     Route: 055

REACTIONS (5)
  - Pneumonia [Fatal]
  - Respiratory failure [Fatal]
  - Disease progression [Fatal]
  - Dyspnoea [Fatal]
  - Pleural effusion [Fatal]
